FAERS Safety Report 20199521 (Version 1)
Quarter: 2021Q4

REPORT INFORMATION
  Report Type: Spontaneous
  Country: US (occurrence: US)
  Receive Date: 20211217
  Receipt Date: 20211217
  Transmission Date: 20220303
  Serious: No
  Sender: FDA-Public Use
  Company Number: US-PACIRA-2021000292

PATIENT
  Age: 43 Year
  Sex: Female
  Weight: 70 kg

DRUGS (2)
  1. EXPAREL [Suspect]
     Active Substance: BUPIVACAINE
     Dosage: 10 ML EXPAREL ADMIXED WITH 15 ML 0.5% BUPIVACAINE
     Route: 065
  2. BUPIVACAINE HYDROCHLORIDE [Suspect]
     Active Substance: BUPIVACAINE HYDROCHLORIDE
     Dosage: 15 ML 0.5% BUPIVACAINE ADMIXED WITH  10 ML EXPAREL
     Route: 065

REACTIONS (2)
  - Muscular weakness [Recovering/Resolving]
  - Hypoaesthesia [Recovered/Resolved]
